FAERS Safety Report 5068478-0 (Version None)
Quarter: 2006Q3

REPORT INFORMATION
  Report Type: 
  Country: None (occurrence: None)
  Receive Date: 20060802
  Receipt Date: 20051017
  Transmission Date: 20061208
  Serious: No
  Sender: FDA-Public Use
  Company Number: US-BRISTOL-MYERS SQUIBB COMPANY-13146949

PATIENT
  Age: 82 Year
  Sex: Male
  Weight: 88 kg

DRUGS (4)
  1. WARFARIN SODIUM [Suspect]
     Indication: THROMBOSIS
     Dosage: DURATION: 15 YEARS
  2. FOLIC ACID [Concomitant]
     Dosage: DURATION: 5 YEARS
  3. VERAPAMIL [Concomitant]
     Dosage: DURATION: 15 YEARS
  4. CLARITIN [Concomitant]
     Dosage: DURATION: 15 YEARS

REACTIONS (1)
  - DIARRHOEA [None]
